FAERS Safety Report 20849523 (Version 2)
Quarter: 2023Q2

REPORT INFORMATION
  Report Type: Spontaneous
  Country: US (occurrence: US)
  Receive Date: 20220519
  Receipt Date: 20230620
  Transmission Date: 20230721
  Serious: No
  Sender: FDA-Public Use
  Company Number: US-BRISTOL-MYERS SQUIBB COMPANY-2022-026938

PATIENT
  Age: 63 Year
  Sex: Female

DRUGS (5)
  1. SPRYCEL [Suspect]
     Active Substance: DASATINIB
     Indication: Chronic myeloid leukaemia
     Route: 048
     Dates: start: 20211206
  2. OMEPRAZOLE [Concomitant]
     Active Substance: OMEPRAZOLE
     Indication: Product used for unknown indication
  3. XANAX [Concomitant]
     Active Substance: ALPRAZOLAM
     Indication: Product used for unknown indication
     Dosage: FIRST TWO DOSES ARE A HALF TABLET
  4. VITAMINS [Concomitant]
     Active Substance: VITAMINS
     Indication: Product used for unknown indication
  5. ASPIRIN [Concomitant]
     Active Substance: ASPIRIN
     Indication: Stent placement

REACTIONS (17)
  - Myalgia [Unknown]
  - Headache [Unknown]
  - Dizziness [Unknown]
  - Pain in jaw [Unknown]
  - Tinnitus [Unknown]
  - Feeling abnormal [Unknown]
  - Neck pain [Unknown]
  - Gait disturbance [Unknown]
  - Gastric disorder [Unknown]
  - Dyspnoea [Unknown]
  - Arthralgia [Unknown]
  - Urine odour abnormal [Unknown]
  - Brain fog [Unknown]
  - Weight decreased [Recovered/Resolved]
  - Fatigue [Unknown]
  - Skin burning sensation [Unknown]
  - Speech disorder [Unknown]

NARRATIVE: CASE EVENT DATE: 20220201
